FAERS Safety Report 7293765-5 (Version None)
Quarter: 2011Q1

REPORT INFORMATION
  Report Type: 
  Country: None (occurrence: None)
  Receive Date: 20110202
  Receipt Date: 20110118
  Transmission Date: 20110831
  Serious: Yes (Other)
  Sender: FDA-Public Use
  Company Number: JPI-P-013593

PATIENT
  Age: 53 Year
  Sex: Male

DRUGS (1)
  1. XYREM [Suspect]
     Indication: SLEEP DISORDER
     Dosage: 4.5 GM (2.25 GM,2 IN 1 D), ORAL
     Route: 048
     Dates: start: 20040202, end: 20070101

REACTIONS (5)
  - ABDOMINAL DISTENSION [None]
  - STOMATITIS [None]
  - ATRIAL FIBRILLATION [None]
  - PRECANCEROUS SKIN LESION [None]
  - ABDOMINAL PAIN UPPER [None]
